FAERS Safety Report 4789541-5 (Version None)
Quarter: 2005Q4

REPORT INFORMATION
  Report Type: 
  Country: None (occurrence: None)
  Receive Date: 20051005
  Receipt Date: 20051005
  Transmission Date: 20060501
  Serious: Yes (Life-Threatening, Hospitalization)
  Sender: FDA-Public Use
  Company Number: None

PATIENT
  Age: 76 Year
  Sex: Female
  Weight: 55 kg

DRUGS (3)
  1. HYDROCHLOROTHIAZIDE [Suspect]
     Indication: HYPERTENSION
     Dosage: 50 MG PO DAILY
     Route: 048
  2. ATENOLOL [Concomitant]
  3. CARBIDOPA AND LEVODOPA [Concomitant]

REACTIONS (1)
  - BLOOD SODIUM DECREASED [None]
